FAERS Safety Report 24716254 (Version 1)
Quarter: 2024Q4

REPORT INFORMATION
  Report Type: Spontaneous
  Country: US (occurrence: US)
  Receive Date: 20241210
  Receipt Date: 20241210
  Transmission Date: 20250114
  Serious: Yes (Other)
  Sender: SANOFI AVENTIS
  Company Number: US-SA-2024SA364033

PATIENT
  Age: 55 Year
  Sex: Female

DRUGS (3)
  1. DUPIXENT [Suspect]
     Active Substance: DUPILUMAB
     Indication: Eczema
     Dosage: 600 MG, 1X
     Route: 058
     Dates: start: 20240301, end: 20240301
  2. DUPIXENT [Suspect]
     Active Substance: DUPILUMAB
     Dosage: 300 MG, QOW
     Route: 058
     Dates: start: 2024
  3. RINVOQ [Concomitant]
     Active Substance: UPADACITINIB

REACTIONS (8)
  - Rheumatoid arthritis [Unknown]
  - Joint swelling [Recovering/Resolving]
  - Systemic lupus erythematosus [Unknown]
  - Chills [Unknown]
  - Fungal infection [Recovering/Resolving]
  - Urticaria [Unknown]
  - Rash [Unknown]
  - Eczema [Unknown]

NARRATIVE: CASE EVENT DATE: 20240101
